FAERS Safety Report 10982390 (Version 1)
Quarter: 2015Q1

REPORT INFORMATION
  Report Type: Spontaneous
  Country: US (occurrence: None)
  Receive Date: 20150227
  Receipt Date: 20150227
  Transmission Date: 20150721
  Serious: Yes (Other)
  Sender: FDA-Public Use
  Company Number: US-JNJFOC-20140823858

PATIENT
  Age: 56 Year
  Sex: Female
  Weight: 81.6 kg

DRUGS (4)
  1. NEXIUM [Concomitant]
     Active Substance: ESOMEPRAZOLE MAGNESIUM
  2. PREDNISONE (PREDNISONE) [Concomitant]
     Active Substance: PREDNISONE
  3. IBUPROFEN (IBUPROFEN) UNSPECIFIED [Suspect]
     Active Substance: IBUPROFEN
     Indication: ARTHRALGIA
     Route: 048
  4. PLAQUENIL (HYDROXYCHLOROQUINE SULFATE) [Concomitant]

REACTIONS (4)
  - Anaphylactic reaction [None]
  - Eye swelling [None]
  - Drug hypersensitivity [None]
  - Swelling face [None]
